FAERS Safety Report 6371561-0 (Version None)
Quarter: 2009Q3

REPORT INFORMATION
  Report Type: 
  Country: None (occurrence: None)
  Receive Date: 20090923
  Receipt Date: 20071011
  Transmission Date: 20100115
  Serious: Yes (Other)
  Sender: FDA-Public Use
  Company Number: US-ASTRAZENECA-2007UW23810

PATIENT
  Sex: Male
  Weight: 120.2 kg

DRUGS (8)
  1. SEROQUEL [Suspect]
     Indication: MAJOR DEPRESSION
     Dosage: 200-300 MG
     Route: 048
     Dates: start: 20010502, end: 20071120
  2. SEROQUEL [Suspect]
     Indication: SLEEP DISORDER
     Dosage: 200-300 MG
     Route: 048
     Dates: start: 20010502, end: 20071120
  3. SEROQUEL [Suspect]
     Dosage: 100 MG - 400 MG
     Route: 048
     Dates: start: 20010502
  4. SEROQUEL [Suspect]
     Dosage: 100 MG - 400 MG
     Route: 048
     Dates: start: 20010502
  5. TRAZODONE [Concomitant]
     Dates: start: 20010502
  6. LEXAPRO [Concomitant]
     Dates: start: 20050929
  7. CELEXA [Concomitant]
     Dates: start: 20020129
  8. BUSPIRONE HCL [Concomitant]
     Dates: start: 20020129

REACTIONS (3)
  - ANXIETY [None]
  - DIABETES MELLITUS [None]
  - PANCREATITIS [None]
